FAERS Safety Report 9511610 (Version 2)
Quarter: 2013Q3

REPORT INFORMATION
  Report Type: Report from Study
  Country: MX (occurrence: MX)
  Receive Date: 20130910
  Receipt Date: 20130910
  Transmission Date: 20140515
  Serious: Yes (Other)
  Sender: FDA-Public Use
  Company Number: PHHY2011MX87471

PATIENT
  Age: 52 Year
  Sex: Female

DRUGS (6)
  1. GALVUS MET [Suspect]
     Indication: DIABETES MELLITUS
     Dosage: 1 DF(850/50 MG), BID
     Dates: start: 200809
  2. GALVUS MET [Suspect]
     Dosage: 3 DF (500/50), DAILY
  3. EXFORGE HCT [Suspect]
     Dosage: UNK UKN, UNK
  4. FOSAMAX [Concomitant]
     Dosage: 1 BY WEEK
  5. GLINORBORAL [Concomitant]
     Dosage: UNK UKN, UNK
  6. HUMULIN [Concomitant]
     Dosage: 20 U, QD (IN THE MORINING)

REACTIONS (7)
  - Hypertension [Not Recovered/Not Resolved]
  - Renal disorder [Recovered/Resolved]
  - Fatigue [Recovered/Resolved]
  - Blood glucose decreased [Recovering/Resolving]
  - Blood urea increased [Unknown]
  - Blood creatinine increased [Unknown]
  - Blood potassium decreased [Unknown]
